FAERS Safety Report 6930943-6 (Version None)
Quarter: 2010Q3

REPORT INFORMATION
  Report Type: 
  Country: None (occurrence: None)
  Receive Date: 20100817
  Receipt Date: 20100817
  Transmission Date: 20110219
  Serious: No
  Sender: FDA-Public Use
  Company Number: None

PATIENT
  Age: 29 Year
  Sex: Male

DRUGS (1)
  1. LEVAQUIN [Suspect]
     Dosage: 500MG DAILY IV PIGGYBACK
     Route: 042
     Dates: start: 20100805, end: 20100805

REACTIONS (1)
  - INFUSION SITE ERYTHEMA [None]
